FAERS Safety Report 12955904 (Version 3)
Quarter: 2016Q4

REPORT INFORMATION
  Report Type: Spontaneous
  Country: US (occurrence: US)
  Receive Date: 20161118
  Receipt Date: 20161219
  Transmission Date: 20170207
  Serious: Yes (Other)
  Sender: FDA-Public Use
  Company Number: US-CELGENEUS-USA-2016112912

PATIENT
  Age: 66 Year
  Sex: Female
  Weight: 63.56 kg

DRUGS (8)
  1. OTEZLA [Suspect]
     Active Substance: APREMILAST
     Indication: PSORIATIC ARTHROPATHY
  2. NEURONTIN [Concomitant]
     Active Substance: GABAPENTIN
     Indication: PAIN
     Dosage: 900 MG
     Route: 065
  3. OMEGA 3-6-9 [Concomitant]
     Active Substance: FISH OIL
     Indication: SUPPLEMENTATION THERAPY
     Route: 065
  4. ONE A DAY [Concomitant]
     Indication: VITAMIN SUPPLEMENTATION
     Route: 065
  5. KLONOPIN [Concomitant]
     Active Substance: CLONAZEPAM
     Indication: PRODUCT USED FOR UNKNOWN INDICATION
     Dosage: .5 TABLET
     Route: 048
  6. OTEZLA [Suspect]
     Active Substance: APREMILAST
     Indication: PSORIASIS
     Dosage: 60MG
     Route: 048
     Dates: start: 20160920
  7. TRAMADOL. [Concomitant]
     Active Substance: TRAMADOL
     Indication: PAIN
     Dosage: 50MG
     Route: 065
  8. GLUCOSAMINE/CHONDROITIN [Concomitant]
     Indication: ARTHRITIS
     Route: 065

REACTIONS (6)
  - Pain in extremity [Unknown]
  - Joint swelling [Unknown]
  - Varicose vein [Unknown]
  - Headache [Unknown]
  - Osteoarthritis [Unknown]
  - Unevaluable event [Unknown]

NARRATIVE: CASE EVENT DATE: 20161024
